FAERS Safety Report 9350818 (Version 1)
Quarter: 2013Q2

REPORT INFORMATION
  Report Type: Spontaneous
  Country: CO (occurrence: CO)
  Receive Date: 20130617
  Receipt Date: 20130617
  Transmission Date: 20140414
  Serious: Yes (Death)
  Sender: FDA-Public Use
  Company Number: CO-MILLENNIUM PHARMACEUTICALS, INC.-2013-04363

PATIENT
  Sex: 0

DRUGS (1)
  1. VELCADE [Suspect]
     Indication: PLASMA CELL MYELOMA
     Dosage: 2.0 MG/M2, CYCLIC
     Route: 065
     Dates: start: 20130311

REACTIONS (2)
  - Cardio-respiratory arrest [Fatal]
  - General physical health deterioration [Fatal]
